FAERS Safety Report 6637385-1 (Version None)
Quarter: 2010Q1

REPORT INFORMATION
  Report Type: 
  Country: None (occurrence: None)
  Receive Date: 20100311
  Receipt Date: 20100225
  Transmission Date: 20100710
  Serious: Yes (Other)
  Sender: FDA-Public Use
  Company Number: 2010AP000212

PATIENT
  Age: 83 Year
  Sex: Female

DRUGS (1)
  1. VALPROIC ACID [Suspect]
     Indication: EPILEPSY
     Dosage: 500 MG;BID

REACTIONS (3)
  - CEREBELLAR ATAXIA [None]
  - CEREBELLAR SYNDROME [None]
  - PARKINSONISM [None]
